FAERS Safety Report 5512925-4 (Version None)
Quarter: 2007Q4

REPORT INFORMATION
  Report Type: 
  Country: None (occurrence: None)
  Receive Date: 20071108
  Receipt Date: 20071108
  Transmission Date: 20080405
  Serious: Yes (Death)
  Sender: FDA-Public Use
  Company Number: None

PATIENT
  Age: 47 Year
  Sex: Male
  Weight: 90.7194 kg

DRUGS (13)
  1. VENOFER [Suspect]
     Indication: ANAEMIA
     Dosage: 100MG IV ONCE DAY
     Dates: start: 20060107, end: 20060108
  2. VENOFER [Suspect]
     Indication: VIRAL MYOCARDITIS
     Dosage: 100MG IV ONCE DAY
     Dates: start: 20060107, end: 20060108
  3. VENOFER [Suspect]
     Indication: ANAEMIA
     Dosage: 100MG IV ONCE DAY
     Dates: start: 20060108, end: 20060108
  4. VENOFER [Suspect]
     Indication: VIRAL MYOCARDITIS
     Dosage: 100MG IV ONCE DAY
     Dates: start: 20060108, end: 20060108
  5. PEPCID [Concomitant]
  6. ASPIRIN [Concomitant]
  7. DULCOLAX [Concomitant]
  8. VANCOMYCIN [Concomitant]
  9. LISINOPRIL [Concomitant]
  10. COREG [Concomitant]
  11. AMIODARONE [Concomitant]
  12. PRONESTYL [Concomitant]
  13. HEPARIN [Concomitant]

REACTIONS (6)
  - CEREBROVASCULAR ACCIDENT [None]
  - CONVULSION [None]
  - HYPERHIDROSIS [None]
  - LOSS OF CONSCIOUSNESS [None]
  - PYREXIA [None]
  - SERUM FERRITIN INCREASED [None]
